FAERS Safety Report 10543016 (Version 1)
Quarter: 2014Q4

REPORT INFORMATION
  Report Type: Spontaneous
  Country: US (occurrence: None)
  Receive Date: 20141024
  Receipt Date: 20141024
  Transmission Date: 20150529
  Serious: No
  Sender: FDA-Public Use
  Company Number: None

PATIENT
  Age: 54 Year
  Sex: Female
  Weight: 48.2 kg

DRUGS (1)
  1. RIZATRIPTAN BENZOATE. [Suspect]
     Active Substance: RIZATRIPTAN BENZOATE
     Indication: DEPRESSION
     Route: 048
     Dates: start: 20140501

REACTIONS (2)
  - Drug effect decreased [None]
  - Abdominal discomfort [None]

NARRATIVE: CASE EVENT DATE: 20140510
